FAERS Safety Report 8313494-6 (Version None)
Quarter: 2012Q2

REPORT INFORMATION
  Report Type: 
  Country: None (occurrence: None)
  Receive Date: 20120426
  Receipt Date: 20120425
  Transmission Date: 20120825
  Serious: Yes (Death, Hospitalization, Other)
  Sender: FDA-Public Use
  Company Number: PHFR2010IE04212

PATIENT
  Sex: Male

DRUGS (1)
  1. CLOZARIL [Suspect]
     Indication: SCHIZOPHRENIA
     Route: 048
     Dates: start: 20010701

REACTIONS (7)
  - LUNG NEOPLASM MALIGNANT [None]
  - HAEMOGLOBIN DECREASED [None]
  - DEATH [None]
  - PULMONARY MASS [None]
  - RESPIRATORY TRACT INFECTION [None]
  - ANAEMIA [None]
  - DEEP VEIN THROMBOSIS [None]
